FAERS Safety Report 4688814-4 (Version None)
Quarter: 2005Q2

REPORT INFORMATION
  Report Type: 
  Country: None (occurrence: None)
  Receive Date: 20050613
  Receipt Date: 20050531
  Transmission Date: 20051028
  Serious: Yes (Other)
  Sender: FDA-Public Use
  Company Number: CA-GLAXOSMITHKLINE-A0561487A

PATIENT
  Age: 31 Year
  Sex: Female

DRUGS (2)
  1. PAXIL [Suspect]
     Indication: DRUG USE FOR UNKNOWN INDICATION
     Dosage: 2440MG PER DAY
     Route: 065
  2. FLUVOXAMINE MALEATE [Suspect]
     Indication: DRUG USE FOR UNKNOWN INDICATION
     Route: 065

REACTIONS (12)
  - AGITATION [None]
  - BODY TEMPERATURE DECREASED [None]
  - BRADYCARDIA [None]
  - CHILLS [None]
  - DYSKINESIA [None]
  - FEELING JITTERY [None]
  - HYPERHIDROSIS [None]
  - INTENTIONAL MISUSE [None]
  - NAUSEA [None]
  - SEROTONIN SYNDROME [None]
  - SUICIDE ATTEMPT [None]
  - VOMITING [None]
